FAERS Safety Report 7318800-7 (Version None)
Quarter: 2011Q1

REPORT INFORMATION
  Report Type: 
  Country: None (occurrence: None)
  Receive Date: 20110228
  Receipt Date: 20100622
  Transmission Date: 20110831
  Serious: No
  Sender: FDA-Public Use
  Company Number: A0866570A

PATIENT
  Sex: Female

DRUGS (10)
  1. IMITREX [Suspect]
     Dosage: 1INJ AS REQUIRED
     Route: 058
  2. SYNTHROID [Concomitant]
  3. UNKNOWN MEDICATION [Concomitant]
  4. ESTROGENIC SUBSTANCE [Concomitant]
  5. IMITREX [Suspect]
     Indication: MIGRAINE
     Dosage: 1INJ AS REQUIRED
     Route: 058
  6. IMITREX [Suspect]
     Dosage: 1TAB AS REQUIRED
     Route: 048
  7. PROGESTERONE [Concomitant]
  8. PEPCID [Concomitant]
  9. IMITREX [Suspect]
     Route: 048
  10. SAVELLA [Concomitant]

REACTIONS (5)
  - DRUG INEFFECTIVE [None]
  - HIATUS HERNIA [None]
  - INCORRECT DOSE ADMINISTERED [None]
  - DRUG ADMINISTRATION ERROR [None]
  - EROSIVE OESOPHAGITIS [None]
